FAERS Safety Report 9518627 (Version 1)
Quarter: 2013Q3

REPORT INFORMATION
  Report Type: Report from Study
  Country: BR (occurrence: BR)
  Receive Date: 20130912
  Receipt Date: 20130912
  Transmission Date: 20140515
  Serious: Yes (Other)
  Sender: FDA-Public Use
  Company Number: PHHY2013BR100060

PATIENT
  Sex: Male
  Weight: 85 kg

DRUGS (1)
  1. ACLASTA [Suspect]
     Indication: SPINAL PAIN
     Dosage: 5 MG, UNK
     Route: 042
     Dates: start: 2012

REACTIONS (2)
  - Syncope [Recovered/Resolved]
  - Malaise [Recovered/Resolved]
